FAERS Safety Report 20695157 (Version 2)
Quarter: 2022Q2

REPORT INFORMATION
  Report Type: Spontaneous
  Country: US (occurrence: US)
  Receive Date: 20220411
  Receipt Date: 20220412
  Transmission Date: 20220721
  Serious: Yes (Other)
  Sender: FDA-Public Use
  Company Number: US-ABBVIE-22K-163-4350710-00

PATIENT
  Sex: Male

DRUGS (1)
  1. LUPRON DEPOT [Suspect]
     Active Substance: LEUPROLIDE ACETATE
     Indication: Product used for unknown indication
     Route: 030

REACTIONS (23)
  - Gastrointestinal disorder [Unknown]
  - Neoplasm malignant [Recovered/Resolved]
  - Hanging [Not Recovered/Not Resolved]
  - Asthenia [Unknown]
  - Blood testosterone decreased [Unknown]
  - Colon injury [Unknown]
  - Feeling cold [Not Recovered/Not Resolved]
  - Urinary incontinence [Unknown]
  - Discharge [Unknown]
  - Blood testosterone abnormal [Unknown]
  - Apathy [Unknown]
  - Muscular weakness [Unknown]
  - Muscular dystrophy [Unknown]
  - Genital disorder [Unknown]
  - Arthritis [Unknown]
  - Myalgia [Not Recovered/Not Resolved]
  - Sleep disorder [Unknown]
  - Rectal injury [Unknown]
  - Sinus disorder [Unknown]
  - Prostatic specific antigen decreased [Unknown]
  - Musculoskeletal disorder [Unknown]
  - Blood testosterone abnormal [Not Recovered/Not Resolved]
  - Ankylosing spondylitis [Unknown]

NARRATIVE: CASE EVENT DATE: 20220101
